FAERS Safety Report 15464320 (Version 2)
Quarter: 2018Q4

REPORT INFORMATION
  Report Type: Spontaneous
  Country: BR (occurrence: BR)
  Receive Date: 20181004
  Receipt Date: 20181029
  Transmission Date: 20190204
  Serious: Yes (Other)
  Sender: FDA-Public Use
  Company Number: BR-PFIZER INC-2018394948

PATIENT
  Sex: Female

DRUGS (2)
  1. DEPO-PROVERA [Suspect]
     Active Substance: MEDROXYPROGESTERONE ACETATE
     Indication: CONTRACEPTION
     Dosage: UNK, CYCLIC (EVERY 90 DAYS)
     Dates: start: 2013
  2. ROACUTAN [Concomitant]
     Active Substance: ISOTRETINOIN
     Dosage: UNK
     Dates: start: 201803

REACTIONS (2)
  - Amenorrhoea [Unknown]
  - Sinusitis [Unknown]
